FAERS Safety Report 15083329 (Version 1)
Quarter: 2018Q2

REPORT INFORMATION
  Report Type: Spontaneous
  Country: US (occurrence: US)
  Receive Date: 20180628
  Receipt Date: 20180628
  Transmission Date: 20180711
  Serious: Yes (Other)
  Sender: FDA-Public Use
  Company Number: US-LANNETT COMPANY, INC.-US-2018LAN000775

PATIENT

DRUGS (1)
  1. LEVOTHYROXINE SODIUM. [Suspect]
     Active Substance: LEVOTHYROXINE SODIUM
     Indication: HYPOTHYROIDISM
     Dosage: 75 ?G, QD (TAKEN AS SPLIT 50 ?G TABLETS)
     Route: 048
     Dates: start: 2015

REACTIONS (9)
  - Sinusitis [Unknown]
  - Feeling abnormal [Unknown]
  - Ear discomfort [Unknown]
  - Dyspnoea [Unknown]
  - Erythema [Unknown]
  - Hypoxia [Unknown]
  - Head discomfort [Unknown]
  - Dry skin [Unknown]
  - Balance disorder [Unknown]

NARRATIVE: CASE EVENT DATE: 201805
